FAERS Safety Report 25016789 (Version 1)
Quarter: 2025Q1

REPORT INFORMATION
  Report Type: Spontaneous
  Country: US (occurrence: US)
  Receive Date: 20250227
  Receipt Date: 20250227
  Transmission Date: 20250408
  Serious: No
  Sender: UCB
  Company Number: US-UCBSA-2024024586

PATIENT
  Age: 5 Year
  Sex: Female

DRUGS (8)
  1. KEPPRA [Suspect]
     Active Substance: LEVETIRACETAM
     Indication: Cat scratch disease
  2. KEPPRA [Suspect]
     Active Substance: LEVETIRACETAM
     Indication: Status epilepticus
  3. KEPPRA [Suspect]
     Active Substance: LEVETIRACETAM
     Indication: Off label use
  4. ATIVAN [Concomitant]
     Active Substance: LORAZEPAM
     Indication: Cat scratch disease
  5. ATIVAN [Concomitant]
     Active Substance: LORAZEPAM
     Indication: Status epilepticus
  6. VANCOMYCIN [Concomitant]
     Active Substance: VANCOMYCIN
     Indication: Cat scratch disease
  7. CEFTRIAXONE [Concomitant]
     Active Substance: CEFTRIAXONE
     Indication: Cat scratch disease
  8. ACYCLOVIR [Concomitant]
     Active Substance: ACYCLOVIR
     Indication: Cat scratch disease

REACTIONS (1)
  - No adverse event [Unknown]
